FAERS Safety Report 8465881-3 (Version None)
Quarter: 2012Q2

REPORT INFORMATION
  Report Type: 
  Country: None (occurrence: None)
  Receive Date: 20120626
  Receipt Date: 20120618
  Transmission Date: 20120825
  Serious: Yes (Death)
  Sender: FDA-Public Use
  Company Number: US-UCBSA-024881

PATIENT
  Age: 64 Year
  Sex: Female
  Weight: 134.09 kg

DRUGS (14)
  1. INVESTIGATIONAL DRUG [Suspect]
     Indication: RHEUMATOID ARTHRITIS
     Dosage: HIGH DOSE
     Route: 048
     Dates: start: 20100812, end: 20101108
  2. LORTAB [Suspect]
     Indication: OSTEOARTHRITIS
     Dosage: 10/500 MG
     Route: 048
     Dates: start: 20100210, end: 20101108
  3. POTASSIUM CHLORIDE [Concomitant]
     Indication: OEDEMA
     Route: 048
     Dates: start: 20100210, end: 20101108
  4. RESTORIL [Concomitant]
     Indication: INSOMNIA
     Dates: start: 20100514, end: 20101108
  5. POTASSIUM CHLORIDE [Concomitant]
     Indication: MINERAL SUPPLEMENTATION
     Route: 048
     Dates: start: 20100210, end: 20101108
  6. INVESTIGATIONAL DRUG [Suspect]
     Indication: OSTEOARTHRITIS
     Dosage: HIGH DOSE
     Route: 048
     Dates: start: 20100812, end: 20101108
  7. NEXIUM [Concomitant]
     Indication: PROPHYLAXIS AGAINST GASTROINTESTINAL ULCER
     Route: 048
     Dates: start: 20100715, end: 20101108
  8. VENTOLIN HFA [Concomitant]
     Indication: CHRONIC OBSTRUCTIVE PULMONARY DISEASE
     Dosage: 2 PUFFS PRN
     Route: 055
     Dates: start: 19960101, end: 20101108
  9. INVESTIGATIONAL DRUG [Suspect]
     Dosage: LOW DOSE
     Route: 048
     Dates: start: 20100715, end: 20100811
  10. LASIX [Concomitant]
     Indication: OEDEMA
     Route: 048
     Dates: start: 20100210, end: 20101108
  11. TEMAZEPAM [Concomitant]
     Indication: INSOMNIA
     Route: 048
     Dates: start: 20100514, end: 20101108
  12. INVESTIGATIONAL DRUG [Suspect]
     Dosage: LOW DOSE
     Route: 048
     Dates: start: 20100715, end: 20100811
  13. LISINOPRIL [Concomitant]
     Indication: HYPERTENSION
     Route: 048
     Dates: start: 20100514, end: 20101108
  14. ADVAIR DISKUS 100/50 [Concomitant]
     Indication: CHRONIC OBSTRUCTIVE PULMONARY DISEASE
     Dosage: 250/50 MCG
     Route: 055
     Dates: start: 20101008, end: 20101108

REACTIONS (1)
  - RESPIRATORY FAILURE [None]
